FAERS Safety Report 21196077 (Version 2)
Quarter: 2022Q3

REPORT INFORMATION
  Report Type: Spontaneous
  Country: US (occurrence: US)
  Receive Date: 20220810
  Receipt Date: 20220915
  Transmission Date: 20221027
  Serious: No
  Sender: FDA-Public Use
  Company Number: US-PFIZER INC-202201045565

PATIENT
  Age: 37 Year
  Sex: Female
  Weight: 122.45 kg

DRUGS (4)
  1. PAXLOVID [Suspect]
     Active Substance: NIRMATRELVIR\RITONAVIR
     Indication: COVID-19 treatment
     Dosage: UNK, 2X/DAY
     Dates: start: 20220724, end: 20220728
  2. METFORMIN [Concomitant]
     Active Substance: METFORMIN HYDROCHLORIDE
     Dosage: UNK
     Dates: start: 2012
  3. EQUATE FAMOTIDINE ACID REDUCER [Concomitant]
     Dosage: UNK
     Dates: start: 2021
  4. CHOLESTYRAMINE [Concomitant]
     Active Substance: CHOLESTYRAMINE
     Dosage: UNK
     Dates: start: 2018

REACTIONS (11)
  - Dysgeusia [Recovered/Resolved]
  - Oesophageal pain [Recovered/Resolved]
  - Middle insomnia [Recovered/Resolved]
  - Oropharyngeal discomfort [Recovered/Resolved]
  - Abdominal pain upper [Recovered/Resolved]
  - Diarrhoea [Recovered/Resolved]
  - Gastrooesophageal reflux disease [Recovered/Resolved]
  - Throat irritation [Recovered/Resolved]
  - Feeling abnormal [Recovered/Resolved]
  - Taste disorder [Recovered/Resolved]
  - Product taste abnormal [Recovered/Resolved]

NARRATIVE: CASE EVENT DATE: 20220724
